FAERS Safety Report 25133964 (Version 1)
Quarter: 2025Q1

REPORT INFORMATION
  Report Type: Spontaneous
  Country: DE (occurrence: DE)
  Receive Date: 20250328
  Receipt Date: 20250328
  Transmission Date: 20250408
  Serious: Yes (Hospitalization)
  Sender: ALEXION PHARMACEUTICALS
  Company Number: DE-PEI-202500006359

PATIENT
  Age: 3 Day
  Weight: 3.5 kg

DRUGS (1)
  1. BEYFORTUS [Suspect]
     Active Substance: NIRSEVIMAB-ALIP
     Indication: Respiratory syncytial virus immunisation
     Route: 065

REACTIONS (5)
  - Lethargy [Recovered/Resolved]
  - Hypotonia [Recovered/Resolved]
  - Hypothermia neonatal [Recovered/Resolved]
  - Poor feeding infant [Recovered/Resolved]
  - Lividity [Recovered/Resolved]
